FAERS Safety Report 9861802 (Version 1)
Quarter: 2014Q1

REPORT INFORMATION
  Report Type: Spontaneous
  Country: GB (occurrence: GB)
  Receive Date: 20140203
  Receipt Date: 20140203
  Transmission Date: 20141002
  Serious: Yes (Other)
  Sender: FDA-Public Use
  Company Number: GB-RANBAXY-2014R1-77613

PATIENT
  Age: 80 Year
  Sex: Female
  Weight: 56 kg

DRUGS (15)
  1. CLOPIDOGREL [Suspect]
     Indication: PRODUCT USED FOR UNKNOWN INDICATION
     Dosage: 75 MG, QD
     Route: 065
  2. CLOPIDOGREL [Suspect]
     Dosage: 75 MG, SINGLE
     Route: 065
  3. CLOPIDOGREL [Suspect]
     Indication: PRODUCT USED FOR UNKNOWN INDICATION
     Dosage: 75 MG, SINGLE
     Route: 065
  4. DALTEPARIN [Suspect]
     Indication: PROPHYLAXIS
     Dosage: UNK
     Route: 058
  5. DALTEPARIN [Suspect]
     Dosage: 1 DF, SINGLE
     Route: 058
  6. BUPIVICAINE [Suspect]
     Indication: ANAESTHESIA
     Dosage: UNK
     Route: 008
  7. MORPHINE [Suspect]
     Indication: ANAESTHESIA
     Dosage: UNK
     Route: 008
  8. LIDOCAINE [Suspect]
     Indication: ANAESTHESIA
     Dosage: UNK
     Route: 008
  9. BUPIVACAINE [Suspect]
     Indication: ANAESTHESIA
     Dosage: 7 ML, Q1H
     Route: 008
  10. BUPIVACAINE [Suspect]
     Indication: ANAESTHESIA
     Dosage: 10 ML, SINGLE
     Route: 008
  11. BUPIVACAINE [Suspect]
     Indication: PRODUCT USED FOR UNKNOWN INDICATION
     Dosage: 9 ML, Q1H
     Route: 008
  12. FUROSEMIDE [Concomitant]
     Indication: PRODUCT USED FOR UNKNOWN INDICATION
     Dosage: 20 MG, QD
     Route: 065
  13. VERAPAMIL [Concomitant]
     Indication: PRODUCT USED FOR UNKNOWN INDICATION
     Dosage: 120 MG, QD
     Route: 065
  14. LANSOPRAZOLE [Concomitant]
     Indication: PRODUCT USED FOR UNKNOWN INDICATION
     Dosage: 30 MG, QD
     Route: 065
  15. RISEDRONATE [Concomitant]
     Indication: PRODUCT USED FOR UNKNOWN INDICATION
     Dosage: 35 MG, 1/WEEK
     Route: 065

REACTIONS (1)
  - Extradural haematoma [Not Recovered/Not Resolved]
